FAERS Safety Report 15000759 (Version 1)
Quarter: 2018Q2

REPORT INFORMATION
  Report Type: Spontaneous
  Country: US (occurrence: US)
  Receive Date: 20180521
  Receipt Date: 20180521
  Transmission Date: 20180711
  Serious: No
  Sender: FDA-Public Use
  Company Number: None

PATIENT
  Age: 55 Year
  Sex: Male

DRUGS (1)
  1. SPRYCEL [Suspect]
     Active Substance: DASATINIB

REACTIONS (4)
  - Dyspnoea [None]
  - Full blood count abnormal [None]
  - Fatigue [None]
  - Anaemia [None]

NARRATIVE: CASE EVENT DATE: 20180521
